FAERS Safety Report 8243555 (Version 2)
Quarter: 2017Q3

REPORT INFORMATION
  Report Type: Spontaneous
  Country: DE (occurrence: DE)
  Receive Date: 20111114
  Receipt Date: 20170807
  Transmission Date: 20171128
  Serious: Yes (Hospitalization)
  Sender: FDA-Public Use
  Company Number: DE-TEVA-307982GER

PATIENT
  Age: 41 Year
  Sex: Male

DRUGS (8)
  1. CEFUROXIM [Concomitant]
     Active Substance: CEFUROXIME
     Indication: BRONCHITIS
     Route: 048
     Dates: start: 20110208
  2. LAMOTRIG-ISIS [Suspect]
     Active Substance: LAMOTRIGINE
     Route: 048
     Dates: start: 201006
  3. CARBAMAZEPINE. [Suspect]
     Active Substance: CARBAMAZEPINE
     Route: 048
     Dates: start: 200903
  4. THIORIDAZINE ^NEURAXPHARM^ [Suspect]
     Active Substance: THIORIDAZINE HYDROCHLORIDE
     Route: 048
     Dates: start: 200711
  5. RISPERIDONE. [Suspect]
     Active Substance: RISPERIDONE
     Route: 048
     Dates: start: 200903
  6. TAXILAN (PERAZINE) [Suspect]
     Active Substance: PERAZINE
     Route: 048
     Dates: start: 201009
  7. LORAZEPAM. [Suspect]
     Active Substance: LORAZEPAM
     Route: 048
     Dates: start: 201006
  8. AKINETON [Suspect]
     Active Substance: BIPERIDEN HYDROCHLORIDE
     Route: 048
     Dates: start: 200504

REACTIONS (3)
  - Acute kidney injury [Recovered/Resolved]
  - Thrombocytopenia [Recovered/Resolved]
  - Acute hepatic failure [Recovered/Resolved]

NARRATIVE: CASE EVENT DATE: 20110211
